FAERS Safety Report 12480411 (Version 3)
Quarter: 2016Q3

REPORT INFORMATION
  Report Type: Spontaneous
  Country: JP (occurrence: JP)
  Receive Date: 20160620
  Receipt Date: 20160701
  Transmission Date: 20161109
  Serious: Yes (Death)
  Sender: FDA-Public Use
  Company Number: JP-SUN PHARMACEUTICAL INDUSTRIES LTD-2016RR-118133

PATIENT
  Sex: Male
  Weight: 74.5 kg

DRUGS (2)
  1. PAROXETINE. [Suspect]
     Active Substance: PAROXETINE
     Indication: DEPRESSION
     Dosage: UNK
     Route: 065
  2. FLUNITRAZEPAM [Suspect]
     Active Substance: FLUNITRAZEPAM
     Indication: DEPRESSION
     Dosage: UNK
     Route: 065

REACTIONS (2)
  - Drug interaction [Fatal]
  - Toxicity to various agents [Fatal]
